FAERS Safety Report 8871640 (Version 2)
Quarter: 2013Q2

REPORT INFORMATION
  Report Type: Spontaneous
  Country: US (occurrence: None)
  Receive Date: 20120426
  Receipt Date: 20120703
  Transmission Date: 20140414
  Serious: No
  Sender: FDA-Public Use
  Company Number: PHEH2012US002736

PATIENT
  Age: 51 Year
  Sex: Male

DRUGS (2)
  1. GILENYA [Suspect]
     Indication: MULTIPLE SCLEROSIS
     Route: 048
     Dates: start: 20120119, end: 20120305
  2. SERTRALINE (SERTRALINE) [Concomitant]

REACTIONS (3)
  - Fatigue [None]
  - Headache [None]
  - Memory impairment [None]
